FAERS Safety Report 8435660-1 (Version None)
Quarter: 2012Q2

REPORT INFORMATION
  Report Type: 
  Country: None (occurrence: None)
  Receive Date: 20120614
  Receipt Date: 20120611
  Transmission Date: 20120825
  Serious: Yes (Hospitalization, Other)
  Sender: FDA-Public Use
  Company Number: US-AMGEN-KDL393122

PATIENT
  Age: 54 Year
  Sex: Female

DRUGS (1)
  1. ENBREL [Suspect]
     Indication: RHEUMATOID ARTHRITIS
     Dates: start: 20010701, end: 20100808

REACTIONS (10)
  - DRUG INEFFECTIVE [None]
  - VARICOSE VEIN [None]
  - FATIGUE [None]
  - BRONCHIECTASIS [None]
  - OSTEOARTHRITIS [None]
  - INJECTION SITE PAIN [None]
  - JOINT STIFFNESS [None]
  - LOCAL SWELLING [None]
  - RASH PRURITIC [None]
  - INJECTION SITE HAEMATOMA [None]
